FAERS Safety Report 4746078-7 (Version None)
Quarter: 2005Q3

REPORT INFORMATION
  Report Type: 
  Country: None (occurrence: None)
  Receive Date: 20050816
  Receipt Date: 20050809
  Transmission Date: 20060218
  Serious: Yes (Life-Threatening, Hospitalization)
  Sender: FDA-Public Use
  Company Number: IE-ROCHE-413405

PATIENT
  Age: 68 Year
  Sex: Female

DRUGS (5)
  1. XELODA [Suspect]
     Route: 042
     Dates: start: 20050721, end: 20050803
  2. ZOMETA [Concomitant]
  3. MYCOSTATIN [Concomitant]
  4. INSULIN [Concomitant]
  5. ANTIEMETICS [Concomitant]

REACTIONS (10)
  - BLOOD TEST ABNORMAL [None]
  - BONE MARROW DEPRESSION [None]
  - COAGULOPATHY [None]
  - DEHYDRATION [None]
  - DEPRESSED LEVEL OF CONSCIOUSNESS [None]
  - DRUG TOXICITY [None]
  - HEPATIC FAILURE [None]
  - HYPERTENSION [None]
  - HYPOTENSION [None]
  - INTERNATIONAL NORMALISED RATIO INCREASED [None]
